FAERS Safety Report 16902148 (Version 1)
Quarter: 2019Q4

REPORT INFORMATION
  Report Type: Spontaneous
  Country: US (occurrence: US)
  Receive Date: 20191010
  Receipt Date: 20191010
  Transmission Date: 20200122
  Serious: No
  Sender: FDA-Public Use
  Company Number: US-HEALTHCARE PHARMACEUTICALS LTD.-2075499

PATIENT
  Age: 80 Year
  Sex: Female

DRUGS (1)
  1. ATENOLOL. [Suspect]
     Active Substance: ATENOLOL
     Indication: PRODUCT USED FOR UNKNOWN INDICATION
     Route: 065

REACTIONS (8)
  - Unevaluable event [Unknown]
  - Muscle disorder [Unknown]
  - Drug ineffective [Unknown]
  - Gait disturbance [Unknown]
  - Nightmare [Unknown]
  - Product substitution issue [Unknown]
  - Walking aid user [Unknown]
  - Abnormal dreams [Unknown]
